FAERS Safety Report 8525907-5 (Version None)
Quarter: 2012Q3

REPORT INFORMATION
  Report Type: 
  Country: None (occurrence: None)
  Receive Date: 20120720
  Receipt Date: 20120713
  Transmission Date: 20120928
  Serious: Yes (Other)
  Sender: FDA-Public Use
  Company Number: PHEH2012US014165

PATIENT
  Sex: Female

DRUGS (2)
  1. DIOVAN [Suspect]
  2. PRAVASTATIN [Concomitant]
     Dosage: 40 MG, DAILY

REACTIONS (5)
  - CEREBROVASCULAR ACCIDENT [None]
  - FULL BLOOD COUNT DECREASED [None]
  - FATIGUE [None]
  - DRUG INEFFECTIVE [None]
  - FEELING ABNORMAL [None]
